FAERS Safety Report 6849299-2 (Version None)
Quarter: 2010Q3

REPORT INFORMATION
  Report Type: 
  Country: None (occurrence: None)
  Receive Date: 20100716
  Receipt Date: 20070926
  Transmission Date: 20110219
  Serious: No
  Sender: FDA-Public Use
  Company Number: US-PFIZER INC-2007082639

PATIENT
  Sex: Male
  Weight: 79.5 kg

DRUGS (7)
  1. CHANTIX [Suspect]
     Indication: SMOKING CESSATION THERAPY
     Dates: start: 20070914
  2. DEPAKOTE [Concomitant]
  3. WELLBUTRIN [Concomitant]
  4. OMEPRAZOLE [Concomitant]
  5. ADVAIR DISKUS 100/50 [Concomitant]
  6. ZYRTEC [Concomitant]
  7. AMBIEN [Concomitant]

REACTIONS (5)
  - ABNORMAL DREAMS [None]
  - FATIGUE [None]
  - INSOMNIA [None]
  - IRRITABILITY [None]
  - SLEEP DISORDER [None]
